FAERS Safety Report 7457913-6 (Version None)
Quarter: 2011Q2

REPORT INFORMATION
  Report Type: 
  Country: None (occurrence: None)
  Receive Date: 20110502
  Receipt Date: 20110502
  Transmission Date: 20111010
  Serious: Yes (Death)
  Sender: FDA-Public Use
  Company Number: None

PATIENT
  Age: 82 Year
  Sex: Female

DRUGS (10)
  1. PHENOBARBITAL TAB [Concomitant]
  2. PROCHLORPERAZINE TAB [Concomitant]
  3. METOPROLOL SUCCINATE [Concomitant]
  4. REVLIMID [Suspect]
     Indication: MULTIPLE MYELOMA
     Dosage: REVLIMID 15 MG EVERY OTHER DAY ORALLY
     Route: 048
     Dates: start: 20100501, end: 20101201
  5. HALOPERIDOL [Concomitant]
  6. NIFEDIPINE [Concomitant]
  7. MORPHINE [Concomitant]
  8. FENTANYL [Concomitant]
  9. LORAZEPAM [Concomitant]
  10. INDOMETHACIN [Concomitant]

REACTIONS (5)
  - HYPOGLYCAEMIA [None]
  - PANCYTOPENIA [None]
  - RENAL FAILURE [None]
  - MENTAL IMPAIRMENT [None]
  - CHEST PAIN [None]
